FAERS Safety Report 6724734-9 (Version None)
Quarter: 2010Q2

REPORT INFORMATION
  Report Type: 
  Country: None (occurrence: None)
  Receive Date: 20100513
  Receipt Date: 20100429
  Transmission Date: 20101027
  Serious: Yes (Hospitalization)
  Sender: FDA-Public Use
  Company Number: FR-GENENTECH-291081

PATIENT
  Sex: Male

DRUGS (10)
  1. XOLAIR [Suspect]
     Indication: ASTHMA
     Dosage: 150 MG, 1/MONTH
     Route: 058
     Dates: start: 20090201, end: 20091002
  2. XOLAIR [Suspect]
     Dosage: 150 MG, 1/MONTH
     Route: 058
  3. SINGULAIR [Suspect]
     Indication: DRUG USE FOR UNKNOWN INDICATION
     Dosage: 1 DF, UNK
     Dates: start: 20070101
  4. SOLUPRED [Concomitant]
     Indication: DRUG USE FOR UNKNOWN INDICATION
     Dosage: UNK
     Dates: start: 20090701, end: 20090801
  5. AIROMIR [Concomitant]
     Indication: DRUG USE FOR UNKNOWN INDICATION
  6. SYMBICORT [Concomitant]
     Indication: DRUG USE FOR UNKNOWN INDICATION
  7. EBASTINE [Concomitant]
     Indication: DRUG USE FOR UNKNOWN INDICATION
  8. BRICANYL [Concomitant]
     Indication: DRUG USE FOR UNKNOWN INDICATION
  9. ATROVENT [Concomitant]
     Indication: DRUG USE FOR UNKNOWN INDICATION
  10. PULMICORT [Concomitant]
     Indication: DRUG USE FOR UNKNOWN INDICATION

REACTIONS (3)
  - AMYOTROPHY [None]
  - ARTHRALGIA [None]
  - TENDON DISORDER [None]
